FAERS Safety Report 24595210 (Version 1)
Quarter: 2024Q4

REPORT INFORMATION
  Report Type: Spontaneous
  Country: US (occurrence: US)
  Receive Date: 20241108
  Receipt Date: 20241108
  Transmission Date: 20250115
  Serious: No
  Sender: ABBVIE
  Company Number: US-ABBVIE-5992120

PATIENT
  Age: 51 Year
  Sex: Male

DRUGS (5)
  1. BOTOX [Suspect]
     Active Substance: ONABOTULINUMTOXINA
     Indication: Product used for unknown indication
     Dosage: TIME INTERVAL: AS NECESSARY: TOTAL 60 UNITS DOSE OF BOTOX TO FRONTALIS AND GLABELLA?BOTH VIALS DI...
     Route: 065
     Dates: start: 20241012, end: 20241012
  2. BOTOX [Suspect]
     Active Substance: ONABOTULINUMTOXINA
     Indication: Product used for unknown indication
     Dosage: TIME INTERVAL: AS NECESSARY: TOTAL 60 UNITS DOSE OF BOTOX TO FRONTALIS AND GLABELLA?BOTH VIALS DI...
     Route: 065
     Dates: start: 20241012, end: 20241012
  3. BOTOX [Suspect]
     Active Substance: ONABOTULINUMTOXINA
     Indication: Product used for unknown indication
     Dosage: TIME INTERVAL: AS NECESSARY: TOTAL 64 UNITS DOSE OF BOTOX TO FRONTALIS AND GLABELLA?BOTH VIALS DI...
     Route: 065
     Dates: start: 20241030, end: 20241030
  4. BOTOX [Suspect]
     Active Substance: ONABOTULINUMTOXINA
     Indication: Product used for unknown indication
     Dosage: TIME INTERVAL: AS NECESSARY: TOTAL 64 UNITS DOSE OF BOTOX TO FRONTALIS AND GLABELLA?BOTH VIALS DI...
     Route: 065
     Dates: start: 20241030, end: 20241030
  5. BOTOX [Suspect]
     Active Substance: ONABOTULINUMTOXINA
     Indication: Product used for unknown indication
     Dosage: TIME INTERVAL: AS NECESSARY
     Route: 065
     Dates: start: 2020, end: 2020

REACTIONS (1)
  - Drug ineffective [Unknown]
